FAERS Safety Report 5526658-1 (Version None)
Quarter: 2007Q4

REPORT INFORMATION
  Report Type: 
  Country: None (occurrence: None)
  Receive Date: 20071123
  Receipt Date: 20070719
  Transmission Date: 20080405
  Serious: Yes (Hospitalization)
  Sender: FDA-Public Use
  Company Number: 2007MP000366

PATIENT
  Age: 55 Year
  Sex: Male

DRUGS (1)
  1. GLIADEL [Suspect]
     Indication: GLIOBLASTOMA MULTIFORME
     Dosage: 61.6 MG;1X;ICER
     Dates: start: 20070504, end: 20070620

REACTIONS (3)
  - BRAIN OEDEMA [None]
  - IMPLANT SITE NECROSIS [None]
  - NEUROLOGICAL SYMPTOM [None]
